FAERS Safety Report 21309798 (Version 7)
Quarter: 2024Q1

REPORT INFORMATION
  Report Type: Report from Study
  Country: US (occurrence: US)
  Receive Date: 20220908
  Receipt Date: 20240206
  Transmission Date: 20240409
  Serious: Yes (Hospitalization, Other)
  Sender: FDA-Public Use
  Company Number: US-ACADIA PHARMACEUTICALS INC.-ACA-2022-PIM-002753

PATIENT
  Age: 70 Year
  Sex: Male

DRUGS (22)
  1. NUPLAZID [Suspect]
     Active Substance: PIMAVANSERIN TARTRATE
     Indication: Parkinson^s disease psychosis
     Dosage: 34 MILLIGRAM, QD
     Route: 048
  2. ASPIRIN [Concomitant]
     Active Substance: ASPIRIN
  3. CADUET [Concomitant]
     Active Substance: AMLODIPINE BESYLATE\ATORVASTATIN CALCIUM
  4. MINERALS\VITAMINS [Concomitant]
     Active Substance: MINERALS\VITAMINS
  5. ARICEPT [Concomitant]
     Active Substance: DONEPEZIL HYDROCHLORIDE
  6. FIBER [Concomitant]
  7. LEVOTHYROXINE [Concomitant]
     Active Substance: LEVOTHYROXINE\LEVOTHYROXINE SODIUM
  8. MELATONIN [Concomitant]
     Active Substance: MELATONIN
  9. MUCINEX D [Concomitant]
     Active Substance: GUAIFENESIN\PSEUDOEPHEDRINE HYDROCHLORIDE
  10. NITROGLYCERIN [Concomitant]
     Active Substance: NITROGLYCERIN
  11. OLMESARTAN [Concomitant]
     Active Substance: OLMESARTAN
  12. HYDROCHLOROTHIAZIDE\TRIAMTERENE [Concomitant]
     Active Substance: HYDROCHLOROTHIAZIDE\TRIAMTERENE
  13. VITAMIN B12 [Concomitant]
     Active Substance: CYANOCOBALAMIN
  14. DESVENLAFAXINE [Concomitant]
     Active Substance: DESVENLAFAXINE
  15. ZOFRAN [Concomitant]
     Active Substance: ONDANSETRON HYDROCHLORIDE
  16. NERVIVE NERVE RELIEF [Concomitant]
  17. PREDNISONE [Concomitant]
     Active Substance: PREDNISONE
  18. LASIX [Concomitant]
     Active Substance: FUROSEMIDE
  19. TAMSULOSIN [Concomitant]
     Active Substance: TAMSULOSIN
  20. CELEBREX [Concomitant]
     Active Substance: CELECOXIB
  21. POTASSIUM FLUORIDE [Concomitant]
     Active Substance: POTASSIUM FLUORIDE
  22. VALIUM [Concomitant]
     Active Substance: DIAZEPAM
     Dosage: UNK
     Dates: start: 20231220

REACTIONS (7)
  - Internal haemorrhage [Not Recovered/Not Resolved]
  - Dehydration [Recovered/Resolved]
  - Acute kidney injury [Recovered/Resolved]
  - Product dose omission issue [Unknown]
  - Anaemia [Not Recovered/Not Resolved]
  - Mobility decreased [Unknown]
  - Abdominal discomfort [Recovered/Resolved]

NARRATIVE: CASE EVENT DATE: 20220812
